FAERS Safety Report 12695090 (Version 2)
Quarter: 2016Q3

REPORT INFORMATION
  Report Type: Spontaneous
  Country: US (occurrence: US)
  Receive Date: 20160829
  Receipt Date: 20160919
  Transmission Date: 20161109
  Serious: Yes (Hospitalization)
  Sender: FDA-Public Use
  Company Number: US-JNJFOC-20160820064

PATIENT
  Age: 54 Year
  Sex: Male

DRUGS (14)
  1. ZYLOPRIM [Suspect]
     Active Substance: ALLOPURINOL
     Indication: DIALYSIS
     Route: 048
     Dates: start: 2016
  2. TYLENOL [Concomitant]
     Active Substance: ACETAMINOPHEN
     Indication: PREMEDICATION
     Route: 065
  3. BENADRYL [Concomitant]
     Active Substance: DIPHENHYDRAMINE HYDROCHLORIDE
     Indication: PREMEDICATION
     Route: 065
  4. REMICADE [Suspect]
     Active Substance: INFLIXIMAB
     Indication: CROHN^S DISEASE
     Route: 042
     Dates: start: 20160616
  5. ZYLOPRIM [Suspect]
     Active Substance: ALLOPURINOL
     Indication: DIALYSIS
     Route: 048
     Dates: start: 2013
  6. SOLU-MEDROL [Concomitant]
     Active Substance: METHYLPREDNISOLONE SODIUM SUCCINATE
     Indication: PREMEDICATION
     Route: 065
  7. CALCIUM [Concomitant]
     Active Substance: CALCIUM
     Indication: DIALYSIS
     Route: 065
  8. FISH OIL [Concomitant]
     Active Substance: FISH OIL
     Route: 065
  9. AMLODIPINE [Concomitant]
     Active Substance: AMLODIPINE BESYLATE
     Indication: HYPERTENSION
     Route: 065
     Dates: start: 2015
  10. IRON [Concomitant]
     Active Substance: IRON
     Indication: DIALYSIS
     Route: 065
  11. REMICADE [Suspect]
     Active Substance: INFLIXIMAB
     Indication: CROHN^S DISEASE
     Route: 042
     Dates: start: 20091231
  12. ZYLOPRIM [Suspect]
     Active Substance: ALLOPURINOL
     Indication: GOUT
     Route: 048
     Dates: start: 2013
  13. ZYLOPRIM [Suspect]
     Active Substance: ALLOPURINOL
     Indication: GOUT
     Route: 048
     Dates: start: 2016
  14. TERAZOSIN [Concomitant]
     Active Substance: TERAZOSIN\TERAZOSIN HYDROCHLORIDE
     Route: 065

REACTIONS (3)
  - Blood urea increased [Unknown]
  - Cellulitis [Unknown]
  - Renal failure [Unknown]

NARRATIVE: CASE EVENT DATE: 201507
